FAERS Safety Report 23452364 (Version 1)
Quarter: 2024Q1

REPORT INFORMATION
  Report Type: Spontaneous
  Country: US (occurrence: US)
  Receive Date: 20240129
  Receipt Date: 20240129
  Transmission Date: 20240410
  Serious: Yes (Hospitalization, Other)
  Sender: FDA-Public Use
  Company Number: US-ORGANON-O2401USA002470

PATIENT
  Sex: Female

DRUGS (4)
  1. MAXALT [Suspect]
     Active Substance: RIZATRIPTAN BENZOATE
     Indication: Migraine
     Dosage: 10 MILLIGRAM, PRN
     Route: 048
     Dates: start: 2020
  2. NIFEDIPINE [Concomitant]
     Active Substance: NIFEDIPINE
     Indication: Hypertension
     Dosage: 90 MILLIGRAM, QD
     Route: 048
     Dates: start: 2022, end: 20231217
  3. NIFEDIPINE [Concomitant]
     Active Substance: NIFEDIPINE
     Dosage: 30 MILLIGRAM, QD
     Route: 048
     Dates: start: 20231217
  4. LABETALOL [Concomitant]
     Active Substance: LABETALOL\LABETALOL HYDROCHLORIDE
     Indication: Hypertension
     Dosage: 200 MILLIGRAM, TID
     Route: 048
     Dates: start: 20230821

REACTIONS (4)
  - Gestational hypertension [Not Recovered/Not Resolved]
  - Gestational diabetes [Recovered/Resolved]
  - Failed induction of labour [Recovered/Resolved]
  - Maternal exposure during pregnancy [Unknown]

NARRATIVE: CASE EVENT DATE: 20230420
